FAERS Safety Report 19099372 (Version 1)
Quarter: 2021Q2

REPORT INFORMATION
  Report Type: Report from Study
  Country: None (occurrence: BR)
  Receive Date: 20210407
  Receipt Date: 20210407
  Transmission Date: 20210717
  Serious: Yes (Other)
  Sender: FDA-Public Use
  Company Number: BR-ABBVIE-21P-020-3847810-00

PATIENT
  Sex: Male
  Weight: 68 kg

DRUGS (2)
  1. DEPAKOTE [Suspect]
     Active Substance: DIVALPROEX SODIUM
     Indication: SEIZURE
     Dosage: DAILY DOSE 375 MG,WHEN PATIENT WAS 1 YEAR OLD,IN OCT. PRODUCT WAS REPLACED TO DEPAKOTE ER
     Route: 048
     Dates: end: 202011
  2. GARDENAL [PHENOBARBITAL] [Concomitant]
     Active Substance: PHENOBARBITAL
     Indication: SEIZURE
     Dosage: DAILY DOSE 100 MG, ADMINISTERED AT NIGHT.
     Route: 048

REACTIONS (2)
  - Product use issue [Unknown]
  - Multiple sclerosis [Unknown]
